FAERS Safety Report 22166060 (Version 5)
Quarter: 2023Q2

REPORT INFORMATION
  Report Type: Report from Study
  Country: MX (occurrence: MX)
  Receive Date: 20230403
  Receipt Date: 20230605
  Transmission Date: 20230721
  Serious: Yes (Life-Threatening, Other)
  Sender: FDA-Public Use
  Company Number: MX-002147023-NVSC2023MX018184

PATIENT
  Age: 45 Year
  Sex: Female
  Weight: 96 kg

DRUGS (4)
  1. GILENYA [Suspect]
     Active Substance: FINGOLIMOD HYDROCHLORIDE
     Indication: Multiple sclerosis
     Dosage: 0.5 MG, QD
     Route: 048
     Dates: start: 202203, end: 202302
  2. GILENYA [Suspect]
     Active Substance: FINGOLIMOD HYDROCHLORIDE
     Dosage: 0.5 MG, QD
     Route: 048
     Dates: start: 202205
  3. OMEGA [Concomitant]
     Indication: Hypovitaminosis
     Dosage: 1 DOSAGE FORM, QD (STARTED SEVERAL YEARS AGO)
     Route: 048
  4. VITAMIN D3 [Concomitant]
     Active Substance: CHOLECALCIFEROL
     Indication: Hypovitaminosis
     Dosage: 1 DOSAGE FORM, QD (SEVERAL YEARS AGO)
     Route: 048

REACTIONS (17)
  - White blood cell count decreased [Not Recovered/Not Resolved]
  - Multiple sclerosis relapse [Not Recovered/Not Resolved]
  - Eye pain [Unknown]
  - Vision blurred [Not Recovered/Not Resolved]
  - Headache [Unknown]
  - Limb discomfort [Not Recovered/Not Resolved]
  - Fatigue [Unknown]
  - Neck pain [Unknown]
  - Feeling abnormal [Unknown]
  - Asthenia [Not Recovered/Not Resolved]
  - Inflammation [Recovering/Resolving]
  - Vein disorder [Unknown]
  - Menstrual disorder [Not Recovered/Not Resolved]
  - Memory impairment [Not Recovered/Not Resolved]
  - Malaise [Unknown]
  - Influenza [Recovered/Resolved]
  - Influenza [Recovered/Resolved]

NARRATIVE: CASE EVENT DATE: 20221201
